FAERS Safety Report 7864807-0 (Version None)
Quarter: 2011Q4

REPORT INFORMATION
  Report Type: 
  Country: None (occurrence: None)
  Receive Date: 20111028
  Receipt Date: 20101027
  Transmission Date: 20120403
  Serious: No
  Sender: FDA-Public Use
  Company Number: US-GLAXOSMITHKLINE-A0858948A

PATIENT
  Age: 69 Year
  Sex: Female

DRUGS (7)
  1. IPRATROPIUM BROMIDE [Suspect]
  2. ANTIHYPERTENSIVE [Concomitant]
  3. ADVAIR DISKUS 100/50 [Suspect]
     Indication: CHRONIC OBSTRUCTIVE PULMONARY DISEASE
     Dosage: 1PUFF TWICE PER DAY
     Route: 055
     Dates: start: 20100101
  4. IBUPROFEN (ADVIL) [Concomitant]
  5. THYROID MEDICATION [Concomitant]
  6. ALBUTEROL [Suspect]
  7. LORATADINE [Concomitant]

REACTIONS (3)
  - EYE DISORDER [None]
  - VISION BLURRED [None]
  - LACRIMATION INCREASED [None]
